FAERS Safety Report 6912565-6 (Version None)
Quarter: 2010Q3

REPORT INFORMATION
  Report Type: 
  Country: None (occurrence: None)
  Receive Date: 20100806
  Receipt Date: 20080922
  Transmission Date: 20110219
  Serious: No
  Sender: FDA-Public Use
  Company Number: US-PFIZER INC-2008062198

PATIENT
  Sex: Female
  Weight: 72.7 kg

DRUGS (6)
  1. DETROL LA [Suspect]
     Indication: POLLAKIURIA
  2. ARICEPT [Concomitant]
     Indication: DEMENTIA
  3. FOSAMAX [Concomitant]
     Indication: OSTEOPOROSIS
  4. PLAVIX [Concomitant]
  5. TOPROL-XL [Concomitant]
  6. METOPROLOL [Concomitant]

REACTIONS (1)
  - POLLAKIURIA [None]
